FAERS Safety Report 7388740-6 (Version None)
Quarter: 2011Q1

REPORT INFORMATION
  Report Type: 
  Country: None (occurrence: None)
  Receive Date: 20110324
  Receipt Date: 20110315
  Transmission Date: 20110831
  Serious: Yes (Life-Threatening)
  Sender: FDA-Public Use
  Company Number: 863379

PATIENT
  Age: 43 Year
  Sex: Male
  Weight: 71 kg

DRUGS (3)
  1. OXALIPLATIN [Suspect]
     Indication: COLON CANCER
     Dosage: 160 MG, INTRAVENOUS DRIP
     Route: 041
  2. FLUOROURACIL [Suspect]
     Indication: COLON CANCER
     Dosage: 750 MG, INTRAVENOUS BOLUS
     Route: 040
  3. CALCIUM FOLINATE [Suspect]
     Indication: COLON CANCER
     Dosage: 375 MG, INTRAVENOUS DRIP
     Route: 041

REACTIONS (12)
  - ARRHYTHMIA [None]
  - LEFT VENTRICULAR DYSFUNCTION [None]
  - STATUS EPILEPTICUS [None]
  - CARDIAC ARREST [None]
  - DIARRHOEA [None]
  - ACUTE CORONARY SYNDROME [None]
  - VOMITING [None]
  - CARDIAC FAILURE [None]
  - STRESS CARDIOMYOPATHY [None]
  - DRUG INTERACTION [None]
  - VENTRICULAR TACHYCARDIA [None]
  - CARDIOTOXICITY [None]
